FAERS Safety Report 6269899-0 (Version None)
Quarter: 2009Q3

REPORT INFORMATION
  Report Type: 
  Country: None (occurrence: None)
  Receive Date: 20090714
  Receipt Date: 20090629
  Transmission Date: 20100115
  Serious: Yes (Hospitalization)
  Sender: FDA-Public Use
  Company Number: 001181

PATIENT
  Sex: Male

DRUGS (2)
  1. EDEX [Suspect]
     Indication: ERECTILE DYSFUNCTION
     Dosage: (INTRACAVERNOUS)
     Route: 017
     Dates: start: 20090101, end: 20090101
  2. DONORMYL /00886901/ [Concomitant]

REACTIONS (1)
  - VASCULITIS [None]
